FAERS Safety Report 15215805 (Version 2)
Quarter: 2018Q3

REPORT INFORMATION
  Report Type: Report from Study
  Country: MX (occurrence: MX)
  Receive Date: 20180730
  Receipt Date: 20180808
  Transmission Date: 20181010
  Serious: Yes (Death)
  Sender: FDA-Public Use
  Company Number: MX-UCBSA-2017031430

PATIENT
  Sex: Female

DRUGS (3)
  1. ROTIGOTINE [Suspect]
     Active Substance: ROTIGOTINE
     Indication: PARKINSONISM
     Dosage: 2 MG, ONCE DAILY (QD)
     Route: 062
     Dates: end: 2017
  2. ROTIGOTINE [Suspect]
     Active Substance: ROTIGOTINE
     Indication: CREUTZFELDT-JAKOB DISEASE
  3. ROTIGOTINE [Suspect]
     Active Substance: ROTIGOTINE
     Indication: OFF LABEL USE

REACTIONS (3)
  - Death [Fatal]
  - Drug ineffective for unapproved indication [Unknown]
  - Off label use [Unknown]
